FAERS Safety Report 6135551-5 (Version None)
Quarter: 2009Q1

REPORT INFORMATION
  Report Type: 
  Country: None (occurrence: None)
  Receive Date: 20090327
  Receipt Date: 20090319
  Transmission Date: 20090719
  Serious: No
  Sender: FDA-Public Use
  Company Number: B0566330A

PATIENT

DRUGS (1)
  1. NICOTINE LOZENGE [Suspect]
     Dosage: 60MG PER DAY
     Route: 065
     Dates: start: 20040101

REACTIONS (2)
  - INTENTIONAL DRUG MISUSE [None]
  - OVERDOSE [None]
